FAERS Safety Report 4413235-9 (Version None)
Quarter: 2004Q3

REPORT INFORMATION
  Report Type: 
  Country: None (occurrence: None)
  Receive Date: 20040802
  Receipt Date: 20040726
  Transmission Date: 20050211
  Serious: Yes (Other)
  Sender: FDA-Public Use
  Company Number: BR-BRISTOL-MYERS SQUIBB COMPANY-12651956

PATIENT
  Age: 34 Year
  Sex: Female

DRUGS (3)
  1. EFAVIRENZ [Suspect]
     Indication: HIV INFECTION
     Dates: start: 20000601
  2. DIDANOSINE [Suspect]
     Indication: HIV INFECTION
     Dates: start: 20000601
  3. ZIDOVUDINE [Suspect]
     Indication: HIV INFECTION
     Dates: start: 20000601

REACTIONS (2)
  - GRANULOMA [None]
  - LEPROSY [None]
